FAERS Safety Report 10593746 (Version 15)
Quarter: 2018Q2

REPORT INFORMATION
  Report Type: Report from Study
  Country: US (occurrence: US)
  Receive Date: 20141119
  Receipt Date: 20180625
  Transmission Date: 20180711
  Serious: Yes (Hospitalization, Other)
  Sender: FDA-Public Use
  Company Number: US-SA-2014SA079350

PATIENT
  Age: 59 Year
  Sex: Female

DRUGS (6)
  1. TERIFLUNOMIDE [Suspect]
     Active Substance: TERIFLUNOMIDE
     Indication: MULTIPLE SCLEROSIS
     Dosage: UNK UNK,UNK
     Route: 048
     Dates: start: 20140512
  2. TERIFLUNOMIDE [Suspect]
     Active Substance: TERIFLUNOMIDE
     Dosage: 7 MG,QD
     Route: 048
     Dates: start: 20140603
  3. TERIFLUNOMIDE [Suspect]
     Active Substance: TERIFLUNOMIDE
     Dosage: 7 MG,QD
     Route: 048
  4. TERIFLUNOMIDE [Suspect]
     Active Substance: TERIFLUNOMIDE
     Dosage: 7 MG,QD
     Route: 048
  5. TERIFLUNOMIDE [Suspect]
     Active Substance: TERIFLUNOMIDE
     Dosage: 14 MG,QD
     Route: 048
  6. TERIFLUNOMIDE [Suspect]
     Active Substance: TERIFLUNOMIDE
     Dosage: 14 MG,QD
     Route: 048

REACTIONS (25)
  - Fatigue [Unknown]
  - Gait disturbance [Not Recovered/Not Resolved]
  - Diarrhoea [Unknown]
  - Alopecia [Recovered/Resolved]
  - Arthropathy [Unknown]
  - Palpitations [Recovered/Resolved]
  - Drug dose omission [Unknown]
  - Nausea [Unknown]
  - Malaise [Unknown]
  - Migraine [Unknown]
  - Bronchitis [Unknown]
  - Joint injury [Unknown]
  - Tendonitis [Unknown]
  - Thyroid disorder [Unknown]
  - Arthropathy [Unknown]
  - Cognitive disorder [Unknown]
  - Erythema [Recovered/Resolved]
  - Transient ischaemic attack [Unknown]
  - Dyspnoea [Unknown]
  - Headache [Unknown]
  - Dysphagia [Unknown]
  - Pulmonary hypertension [Unknown]
  - Dizziness [Unknown]
  - Muscular weakness [Not Recovered/Not Resolved]
  - Alopecia [Unknown]

NARRATIVE: CASE EVENT DATE: 2014
